FAERS Safety Report 7353544-7 (Version None)
Quarter: 2011Q1

REPORT INFORMATION
  Report Type: 
  Country: None (occurrence: None)
  Receive Date: 20110315
  Receipt Date: 20110308
  Transmission Date: 20110831
  Serious: Yes (Other)
  Sender: FDA-Public Use
  Company Number: TR-ELI_LILLY_AND_COMPANY-TR201103003187

PATIENT

DRUGS (2)
  1. CLOZAPINE [Concomitant]
     Indication: SCHIZOPHRENIA
     Dosage: 200, UNKNOWN
  2. OLANZAPINE [Suspect]
     Indication: SCHIZOPHRENIA
     Dosage: 10, UNKNOWN

REACTIONS (1)
  - GRANULOCYTOPENIA [None]
